FAERS Safety Report 7673283-2 (Version None)
Quarter: 2011Q3

REPORT INFORMATION
  Report Type: 
  Country: None (occurrence: None)
  Receive Date: 20110810
  Receipt Date: 20110728
  Transmission Date: 20111222
  Serious: No
  Sender: FDA-Public Use
  Company Number: US-ROXANE LABORATORIES, INC.-2011-RO-01125RO

PATIENT
  Sex: Male

DRUGS (1)
  1. ACARBOSE [Suspect]
     Dosage: 75 MG
     Route: 048
     Dates: start: 20110422, end: 20110522

REACTIONS (5)
  - ABDOMINAL DISTENSION [None]
  - HAEMATOCHEZIA [None]
  - MELAENA [None]
  - CHEST PAIN [None]
  - FAECES DISCOLOURED [None]
